FAERS Safety Report 5802133-1 (Version None)
Quarter: 2008Q3

REPORT INFORMATION
  Report Type: 
  Country: None (occurrence: None)
  Receive Date: 20080707
  Receipt Date: 20080625
  Transmission Date: 20090109
  Serious: Yes (Hospitalization, Other)
  Sender: FDA-Public Use
  Company Number: IE-PFIZER INC-2007105310

PATIENT
  Sex: Male

DRUGS (7)
  1. VIAGRA [Suspect]
     Indication: ERECTILE DYSFUNCTION
     Route: 048
  2. CLARITHROMYCIN [Interacting]
     Indication: ULCER
  3. CLARITHROMYCIN [Interacting]
     Indication: GASTRIC ULCER
  4. AMOXICILLIN [Interacting]
     Indication: ULCER
  5. AMOXICILLIN [Interacting]
     Indication: GASTRIC ULCER
  6. OMEPRAZOLE [Interacting]
     Indication: ULCER
  7. OMEPRAZOLE [Interacting]
     Indication: GASTRIC ULCER

REACTIONS (7)
  - CONVULSION [None]
  - DRUG INTERACTION [None]
  - GASTRIC ULCER [None]
  - HAEMOLYSIS [None]
  - HEART RATE INCREASED [None]
  - HYPERTENSION [None]
  - ROAD TRAFFIC ACCIDENT [None]
